FAERS Safety Report 10268568 (Version 1)
Quarter: 2014Q2

REPORT INFORMATION
  Report Type: Spontaneous
  Country: BR (occurrence: BR)
  Receive Date: 20140630
  Receipt Date: 20140630
  Transmission Date: 20141212
  Serious: Yes (Other)
  Sender: FDA-Public Use
  Company Number: BR-PFIZER INC-2014177261

PATIENT
  Age: 71 Year
  Sex: Male
  Weight: 97 kg

DRUGS (1)
  1. LIPITOR [Suspect]
     Dosage: 40 MG, 2X/DAY
     Route: 048
     Dates: start: 2013

REACTIONS (1)
  - Cardiac disorder [Unknown]
